FAERS Safety Report 16247440 (Version 1)
Quarter: 2019Q2

REPORT INFORMATION
  Report Type: Spontaneous
  Country: ES (occurrence: ES)
  Receive Date: 20190428
  Receipt Date: 20190428
  Transmission Date: 20190711
  Serious: Yes (Other)
  Sender: FDA-Public Use
  Company Number: ES-CONCORDIA PHARMACEUTICALS INC.-E2B_00011658

PATIENT
  Age: 60 Year
  Sex: Male
  Weight: 58 kg

DRUGS (2)
  1. ZONEGRAN [Suspect]
     Active Substance: ZONISAMIDE
     Dosage: REDUCED DOSE (DOSE UNKNOWN)
     Route: 048
     Dates: start: 2018
  2. ZONEGRAN [Suspect]
     Active Substance: ZONISAMIDE
     Indication: PSYCHOMOTOR HYPERACTIVITY
     Route: 048
     Dates: start: 20170818, end: 2018

REACTIONS (2)
  - Thrombocytopenia [Recovering/Resolving]
  - Leukopenia [Recovered/Resolved]

NARRATIVE: CASE EVENT DATE: 20180105
